FAERS Safety Report 5423214-0 (Version None)
Quarter: 2007Q3

REPORT INFORMATION
  Report Type: 
  Country: None (occurrence: None)
  Receive Date: 20070730
  Receipt Date: 20070302
  Transmission Date: 20080115
  Serious: Yes (Other)
  Sender: FDA-Public Use
  Company Number: 200710201BWH

PATIENT
  Sex: Female

DRUGS (2)
  1. AVELOX [Suspect]
     Indication: SINUSITIS
     Dosage: ORAL
     Route: 048
     Dates: start: 20070107, end: 20070111
  2. MOTRIN [Concomitant]

REACTIONS (7)
  - ANXIETY [None]
  - HEART RATE INCREASED [None]
  - HYPERHIDROSIS [None]
  - HYPERTENSION [None]
  - INSOMNIA [None]
  - NERVOUSNESS [None]
  - THINKING ABNORMAL [None]
